FAERS Safety Report 6129380-6 (Version None)
Quarter: 2009Q1

REPORT INFORMATION
  Report Type: 
  Country: None (occurrence: None)
  Receive Date: 20090324
  Receipt Date: 20090310
  Transmission Date: 20090719
  Serious: Yes (Other)
  Sender: FDA-Public Use
  Company Number: US-PFIZER INC-2006034679

PATIENT
  Sex: Female

DRUGS (12)
  1. PROVERA [Suspect]
     Indication: HORMONE REPLACEMENT THERAPY
     Dosage: UNK
     Route: 065
     Dates: start: 19920101, end: 19960101
  2. PROVERA [Suspect]
     Indication: HOT FLUSH
  3. ESTRADIOL AND ESTRADIOL CIPIONATE [Suspect]
     Indication: HORMONE REPLACEMENT THERAPY
     Route: 065
     Dates: start: 19920101, end: 20030101
  4. PREMARIN [Suspect]
     Indication: HORMONE REPLACEMENT THERAPY
     Dosage: UNK
     Route: 065
     Dates: start: 19920101, end: 19960101
  5. PREMARIN [Suspect]
     Indication: HOT FLUSH
  6. PREMPRO [Suspect]
     Indication: HORMONE REPLACEMENT THERAPY
     Dosage: UNK
     Route: 065
     Dates: start: 19960101, end: 19990101
  7. PREMPRO [Suspect]
     Indication: HOT FLUSH
     Dosage: UNK
     Route: 065
     Dates: start: 20000101, end: 20030101
  8. PREFEST [Suspect]
     Indication: HORMONE REPLACEMENT THERAPY
     Dosage: UNK
     Route: 065
     Dates: start: 19990101, end: 20000101
  9. PREFEST [Suspect]
     Indication: HOT FLUSH
  10. TOPRAL [Concomitant]
     Indication: BLOOD PRESSURE
     Dosage: UNK
     Dates: start: 19990101
  11. ASPIRIN [Concomitant]
     Indication: BLOOD PRESSURE
     Dosage: UNK
     Dates: start: 19990101
  12. LIPITOR [Concomitant]
     Indication: BLOOD CHOLESTEROL
     Dosage: UNK
     Dates: start: 19990101

REACTIONS (1)
  - BREAST CANCER IN SITU [None]
